FAERS Safety Report 7201364-6 (Version None)
Quarter: 2010Q4

REPORT INFORMATION
  Report Type: 
  Country: None (occurrence: None)
  Receive Date: 20101229
  Receipt Date: 20101223
  Transmission Date: 20110411
  Serious: Yes (Other)
  Sender: FDA-Public Use
  Company Number: US-SANOFI-AVENTIS-2010SA075038

PATIENT
  Age: 75 Year
  Sex: Male
  Weight: 95.25 kg

DRUGS (5)
  1. LANTUS [Suspect]
     Indication: TYPE 2 DIABETES MELLITUS
     Dosage: IN THE EVENING DOSE:40 UNIT(S)
     Route: 058
     Dates: start: 20050101
  2. OPTICLICK [Suspect]
     Indication: TYPE 2 DIABETES MELLITUS
     Dates: start: 20050101
  3. GLIPIZIDE [Concomitant]
  4. ASPIRIN [Concomitant]
     Indication: PROPHYLAXIS
  5. WARFARIN [Concomitant]
     Indication: CARDIAC DISORDER
     Dosage: 2 AND A HALF ONE DAY AND 5 OTHER DAY

REACTIONS (1)
  - CARPAL TUNNEL DECOMPRESSION [None]
